FAERS Safety Report 24691904 (Version 9)
Quarter: 2025Q2

REPORT INFORMATION
  Report Type: Spontaneous
  Country: US (occurrence: US)
  Receive Date: 20241203
  Receipt Date: 20250424
  Transmission Date: 20250717
  Serious: No
  Sender: PFIZER
  Company Number: US-PFIZER INC-202400310315

PATIENT
  Age: 5 Year
  Sex: Male
  Weight: 16.78 kg

DRUGS (5)
  1. GENOTROPIN [Suspect]
     Active Substance: SOMATROPIN
     Indication: Growth hormone deficiency
     Dosage: 0.6 MG, 1X/DAY (7 DAYS/WEEK )
     Route: 058
     Dates: start: 202408, end: 202411
  2. GENOTROPIN [Suspect]
     Active Substance: SOMATROPIN
  3. HYDROCORTISONE [Concomitant]
     Active Substance: HYDROCORTISONE
     Indication: Cortisol abnormal
     Dosage: UNK, DAILY
  4. LEVOTHYROXINE [Concomitant]
     Active Substance: LEVOTHYROXINE
     Indication: Thyroid hormone replacement therapy
     Dosage: UNK, 1X/DAY
  5. NORDITROPIN [Concomitant]
     Active Substance: SOMATROPIN
     Indication: Growth hormone deficiency
     Dosage: 0.5 MG, A WEEK

REACTIONS (5)
  - Device breakage [Recovered/Resolved]
  - Device leakage [Recovered/Resolved]
  - Device material issue [Recovered/Resolved]
  - Wrong technique in device usage process [Unknown]
  - Product communication issue [Unknown]

NARRATIVE: CASE EVENT DATE: 20240901
